FAERS Safety Report 6934141 (Version 2)
Quarter: 2014Q4

REPORT INFORMATION
  Report Type: Report from Study
  Country: ZA (occurrence: ZA)
  Receive Date: 20090311
  Receipt Date: 20141027
  Transmission Date: 20150529
  Serious: Yes (Hospitalization)
  Sender: FDA-Public Use
  Company Number: ZA-BRISTOL-MYERS SQUIBB COMPANY-14521108

PATIENT
  Age: 33 Year
  Sex: Female

DRUGS (5)
  1. PREDNISONE. [Concomitant]
     Active Substance: PREDNISONE
     Dates: start: 20071016
  2. ABATACEPT [Suspect]
     Active Substance: ABATACEPT
     Indication: RHEUMATOID ARTHRITIS
     Dosage: ALSO TAKEN INTRAVENOUSLY
     Route: 058
     Dates: start: 20081201, end: 20090216
  3. PLACEBO [Suspect]
     Active Substance: UNSPECIFIED INGREDIENT
     Indication: RHEUMATOID ARTHRITIS
     Dosage: ALSO TAKEN INTRAVENOUSLY
     Route: 042
     Dates: start: 20081201, end: 20090216
  4. METHOTREXATE [Suspect]
     Active Substance: METHOTREXATE
     Indication: RHEUMATOID ARTHRITIS
     Dates: start: 200710
  5. FOLIC ACID. [Concomitant]
     Active Substance: FOLIC ACID
     Dates: start: 2007

REACTIONS (2)
  - Autoimmune haemolytic anaemia [Recovered/Resolved]
  - Rheumatoid arthritis [Unknown]

NARRATIVE: CASE EVENT DATE: 20090223
